FAERS Safety Report 10129474 (Version 1)
Quarter: 2014Q2

REPORT INFORMATION
  Report Type: Spontaneous
  Country: US (occurrence: US)
  Receive Date: 20140428
  Receipt Date: 20140428
  Transmission Date: 20141212
  Serious: Yes (Other)
  Sender: FDA-Public Use
  Company Number: PHEH2014US007964

PATIENT
  Age: 2 Year
  Sex: Male

DRUGS (1)
  1. TRILEPTAL [Suspect]

REACTIONS (2)
  - Accidental exposure to product by child [Unknown]
  - Toxicity to various agents [Unknown]
